FAERS Safety Report 5116707-7 (Version None)
Quarter: 2006Q3

REPORT INFORMATION
  Report Type: 
  Country: None (occurrence: None)
  Receive Date: 20060928
  Receipt Date: 20060919
  Transmission Date: 20061208
  Serious: Yes (Other)
  Sender: FDA-Public Use
  Company Number: GB-ROCHE-463750

PATIENT
  Age: 60 Year
  Sex: Male

DRUGS (2)
  1. MYCOPHENOLATE MOFETIL [Suspect]
     Route: 065
     Dates: start: 20000615, end: 20011215
  2. MYCOPHENOLATE MOFETIL [Suspect]
     Route: 065
     Dates: start: 20011215, end: 20040315

REACTIONS (2)
  - COLITIS [None]
  - DIVERTICULUM [None]
